FAERS Safety Report 5473503-9 (Version None)
Quarter: 2007Q3

REPORT INFORMATION
  Report Type: 
  Country: None (occurrence: None)
  Receive Date: 20070830
  Receipt Date: 20070131
  Transmission Date: 20080115
  Serious: Yes (Other)
  Sender: FDA-Public Use
  Company Number: KADN20070030

PATIENT
  Sex: Female

DRUGS (2)
  1. KADIAN [Suspect]
  2. DURAGESIC-100 [Suspect]

REACTIONS (4)
  - DRUG INEFFECTIVE [None]
  - DYSPNOEA [None]
  - RASH [None]
  - WHEEZING [None]
